FAERS Safety Report 14039118 (Version 2)
Quarter: 2017Q4

REPORT INFORMATION
  Report Type: Spontaneous
  Country: JP (occurrence: JP)
  Receive Date: 20171004
  Receipt Date: 20171024
  Transmission Date: 20180321
  Serious: Yes (Hospitalization)
  Sender: FDA-Public Use
  Company Number: JP-GE HEALTHCARE LIFE SCIENCES-2017CSU002917

PATIENT

DRUGS (3)
  1. COLOMFORT [Suspect]
     Active Substance: BARIUM SULFATE
     Indication: PRODUCT USED FOR UNKNOWN INDICATION
     Dosage: 32 ML, TID
     Route: 065
     Dates: start: 20170823, end: 20170823
  2. OMNIPAQUE [Suspect]
     Active Substance: IOHEXOL
     Indication: ABDOMINAL PAIN LOWER
     Dosage: 99 ML, SINGLE
     Route: 040
     Dates: start: 20170904, end: 20170904
  3. OMNIPAQUE [Suspect]
     Active Substance: IOHEXOL
     Dosage: 99 ML, QD
     Route: 040
     Dates: start: 20170904, end: 20170904

REACTIONS (1)
  - Anaphylactoid reaction [Recovered/Resolved]

NARRATIVE: CASE EVENT DATE: 20170904
